FAERS Safety Report 7492353-5 (Version None)
Quarter: 2011Q2

REPORT INFORMATION
  Report Type: 
  Country: None (occurrence: None)
  Receive Date: 20110519
  Receipt Date: 20110509
  Transmission Date: 20111010
  Serious: Yes (Hospitalization)
  Sender: FDA-Public Use
  Company Number: NL-TEVA-281998ISR

PATIENT
  Age: 55 Year
  Sex: Male

DRUGS (2)
  1. ACYCLOVIR [Suspect]
  2. VALACICLOVIR [Suspect]

REACTIONS (3)
  - HERPES ZOSTER [None]
  - WALDENSTROM'S MACROGLOBULINAEMIA [None]
  - DRUG INEFFECTIVE [None]
